FAERS Safety Report 4454498-3 (Version None)
Quarter: 2004Q3

REPORT INFORMATION
  Report Type: 
  Country: None (occurrence: None)
  Receive Date: 20040917
  Receipt Date: 20040917
  Transmission Date: 20050211
  Serious: No
  Sender: FDA-Public Use
  Company Number: None

PATIENT
  Sex: Male
  Weight: 52.1637 kg

DRUGS (3)
  1. DEFEROXAMINE 2GM HOSPIRA [Suspect]
     Indication: CONGENITAL APLASTIC ANAEMIA
     Dosage: 2GM DAILY SUBCUTANEOUS
     Route: 058
     Dates: start: 20040601, end: 20040722
  2. DEFEROXAMINE 2GM HOSPIRA [Suspect]
     Indication: HAEMOSIDEROSIS
     Dosage: 2GM DAILY SUBCUTANEOUS
     Route: 058
     Dates: start: 20040601, end: 20040722
  3. DEFEROXAMINE 2GM HOSPIRA [Suspect]
     Indication: WHOLE BLOOD TRANSFUSION
     Dosage: 2GM DAILY SUBCUTANEOUS
     Route: 058
     Dates: start: 20040601, end: 20040722

REACTIONS (4)
  - INJECTION SITE HAEMORRHAGE [None]
  - INJECTION SITE MASS [None]
  - INJECTION SITE PAIN [None]
  - PHARMACEUTICAL PRODUCT COMPLAINT [None]
